FAERS Safety Report 18681463 (Version 1)
Quarter: 2020Q4

REPORT INFORMATION
  Report Type: Spontaneous
  Country: US (occurrence: US)
  Receive Date: 20201229
  Receipt Date: 20201229
  Transmission Date: 20210114
  Serious: Yes (Death, Hospitalization)
  Sender: FDA-Public Use
  Company Number: US-ASTRAZENECA-2020SF74301

PATIENT
  Age: 54 Year
  Sex: Male

DRUGS (6)
  1. DIPHENHYDRAMINE. [Suspect]
     Active Substance: DIPHENHYDRAMINE
     Route: 048
  2. QUETIAPINE (ER) [Suspect]
     Active Substance: QUETIAPINE
     Route: 048
  3. SALICYLATE [Suspect]
     Active Substance: SALICYLIC ACID
     Route: 048
  4. METOPROLOL. [Suspect]
     Active Substance: METOPROLOL
     Route: 048
  5. ACETAMINOPHEN. [Suspect]
     Active Substance: ACETAMINOPHEN
     Route: 048
  6. AMPHETAMINE [Suspect]
     Active Substance: AMPHETAMINE
     Route: 048

REACTIONS (2)
  - Completed suicide [Fatal]
  - Toxicity to various agents [Fatal]
